FAERS Safety Report 5469772-1 (Version None)
Quarter: 2007Q3

REPORT INFORMATION
  Report Type: 
  Country: None (occurrence: None)
  Receive Date: 20070926
  Receipt Date: 20070926
  Transmission Date: 20080115
  Serious: Yes (Life-Threatening)
  Sender: FDA-Public Use
  Company Number: None

PATIENT
  Age: 55 Year
  Sex: Female
  Weight: 65.7716 kg

DRUGS (1)
  1. LYMPHOZURIN 5 CC US SURGICAL [Suspect]
     Indication: DIAGNOSTIC PROCEDURE
     Dosage: 5CC 1X BY IV
     Route: 042
     Dates: start: 20070327, end: 20070327

REACTIONS (2)
  - BLOOD PRESSURE DECREASED [None]
  - INFUSION RELATED REACTION [None]
